FAERS Safety Report 9339169 (Version 5)
Quarter: 2013Q4

REPORT INFORMATION
  Report Type: Spontaneous
  Country: DK (occurrence: DK)
  Receive Date: 20130610
  Receipt Date: 20131205
  Transmission Date: 20140711
  Serious: Yes (Hospitalization, Disabling, Congenital Anomaly)
  Sender: FDA-Public Use
  Company Number: DK-PFIZER INC-2013169903

PATIENT
  Sex: Male
  Weight: 4.38 kg

DRUGS (2)
  1. MINPROSTIN [Suspect]
     Indication: LABOUR INDUCTION
     Dosage: 3 MG, ONE DOSE AT 9:50AM AND SECOND DOSE AT 4:55PM.
     Route: 064
     Dates: start: 20100421, end: 20100421
  2. SYNTOCINON [Suspect]
     Indication: LABOUR INDUCTION
     Dosage: 10 IU IN 1000 ML NACL, FROM 3ML/HOUR UP TO 24ML/HOUR.
     Route: 064
     Dates: start: 20100422, end: 20100422

REACTIONS (6)
  - Maternal exposure during pregnancy [Recovered/Resolved]
  - Neonatal anoxia [Not Recovered/Not Resolved]
  - Asphyxia [Recovered/Resolved with Sequelae]
  - Pallor [Recovered/Resolved]
  - Muscular weakness [Recovered/Resolved]
  - Foetal heart rate decreased [Recovered/Resolved]
